FAERS Safety Report 17009973 (Version 1)
Quarter: 2019Q4

REPORT INFORMATION
  Report Type: Spontaneous
  Country: US (occurrence: US)
  Receive Date: 20190930
  Receipt Date: 20190930
  Transmission Date: 20200122
  Serious: Yes (Hospitalization)
  Sender: FDA-Public Use
  Company Number: None

PATIENT
  Age: 25 Year
  Sex: Female
  Weight: 69.4 kg

DRUGS (1)
  1. IVERMECTIN 3MG [Suspect]
     Active Substance: IVERMECTIN
     Indication: LICE INFESTATION
     Route: 048

REACTIONS (11)
  - Vomiting [None]
  - Blood pressure decreased [None]
  - Blood potassium decreased [None]
  - Dose calculation error [None]
  - Blood magnesium decreased [None]
  - Electrocardiogram QT prolonged [None]
  - Loss of consciousness [None]
  - Nausea [None]
  - Accidental overdose [None]
  - Eye movement disorder [None]
  - Heart rate increased [None]

NARRATIVE: CASE EVENT DATE: 20190929
